FAERS Safety Report 13485705 (Version 1)
Quarter: 2017Q2

REPORT INFORMATION
  Report Type: Spontaneous
  Country: TR (occurrence: TR)
  Receive Date: 20170426
  Receipt Date: 20170426
  Transmission Date: 20170830
  Serious: Yes (Other)
  Sender: FDA-Public Use
  Company Number: TR-PFIZER INC-2017174691

PATIENT
  Sex: Male

DRUGS (2)
  1. PANTPAS [Suspect]
     Active Substance: PANTOPRAZOLE SODIUM
     Dosage: UNK, 1X/DAY (3 OR 4 DAYS)
     Route: 048
  2. PANTPAS [Suspect]
     Active Substance: PANTOPRAZOLE SODIUM
     Indication: FLATULENCE
     Dosage: 40 MG, QD
     Route: 048
     Dates: start: 20161213

REACTIONS (2)
  - Tinnitus [Not Recovered/Not Resolved]
  - Deafness [Not Recovered/Not Resolved]

NARRATIVE: CASE EVENT DATE: 2017
